FAERS Safety Report 25018710 (Version 1)
Quarter: 2025Q1

REPORT INFORMATION
  Report Type: Spontaneous
  Country: US (occurrence: US)
  Receive Date: 20250227
  Receipt Date: 20250227
  Transmission Date: 20250408
  Serious: No
  Sender: AVADEL CNS PHARMACEUTICALS, LLC
  Company Number: US-AVADEL CNS PHARMACEUTICALS, LLC-2025AVA00091

PATIENT
  Sex: Female

DRUGS (6)
  1. LUMRYZ [Suspect]
     Active Substance: SODIUM OXYBATE
     Indication: Narcolepsy
     Dosage: 4.5 G, ONCE NIGHTLY (WEEK 1)
     Route: 048
     Dates: start: 20241209, end: 20241215
  2. LUMRYZ [Suspect]
     Active Substance: SODIUM OXYBATE
     Indication: Cataplexy
  3. LUMRYZ [Suspect]
     Active Substance: SODIUM OXYBATE
     Indication: Narcolepsy
     Dosage: 6 G, ONCE NIGHTLY (WEEK 2+3)
     Route: 048
     Dates: start: 20241216, end: 20241229
  4. LUMRYZ [Suspect]
     Active Substance: SODIUM OXYBATE
     Indication: Cataplexy
     Dosage: 6 G, ONCE NIGHTLY
     Route: 048
  5. LUMRYZ [Suspect]
     Active Substance: SODIUM OXYBATE
     Indication: Narcolepsy
     Dosage: 7.5 G, ONCE NIGHTLY (WEEK 4)
     Route: 048
     Dates: start: 20241230
  6. LUMRYZ [Suspect]
     Active Substance: SODIUM OXYBATE
     Indication: Cataplexy

REACTIONS (12)
  - Poor quality sleep [Recovered/Resolved]
  - Middle insomnia [Recovered/Resolved]
  - Abnormal dreams [Recovered/Resolved]
  - Myalgia [Unknown]
  - Insomnia [Recovered/Resolved]
  - Emotional distress [Recovered/Resolved]
  - Feeling guilty [Recovered/Resolved]
  - Feeling abnormal [Recovered/Resolved]
  - Nervous system disorder [Recovered/Resolved]
  - Pain [Recovered/Resolved]
  - Anxiety [Unknown]
  - Depressed mood [Unknown]
